FAERS Safety Report 18675321 (Version 1)
Quarter: 2020Q4

REPORT INFORMATION
  Report Type: Spontaneous
  Country: US (occurrence: US)
  Receive Date: 20201228
  Receipt Date: 20201228
  Transmission Date: 20210114
  Serious: Yes (Other)
  Sender: FDA-Public Use
  Company Number: None

PATIENT
  Age: 59 Year
  Sex: Female
  Weight: 67.5 kg

DRUGS (1)
  1. PREGABALIN, (GENERIC FOR LYRICA) [Suspect]
     Active Substance: PREGABALIN
     Indication: NEURALGIA
     Dosage: ?
     Route: 048
     Dates: start: 20201224, end: 20201224

REACTIONS (2)
  - Stress [None]
  - Dysphemia [None]

NARRATIVE: CASE EVENT DATE: 20201224
